FAERS Safety Report 9720633 (Version 1)
Quarter: 2013Q4

REPORT INFORMATION
  Report Type: Report from Study
  Country: DE (occurrence: DE)
  Receive Date: 20131129
  Receipt Date: 20131129
  Transmission Date: 20140711
  Serious: No
  Sender: FDA-Public Use
  Company Number: PHHY2013DE137704

PATIENT
  Sex: Male

DRUGS (6)
  1. AMN107 [Suspect]
     Indication: CHRONIC MYELOID LEUKAEMIA
     Dosage: 600 MG, PER DAY
     Route: 048
     Dates: start: 20120831
  2. MCP//METOCLOPRAMIDE [Concomitant]
     Dates: start: 20120801, end: 20120913
  3. NOVALGIN                           /00169801/ [Concomitant]
     Dosage: 30 DRP, PRN
     Dates: start: 20120801, end: 20120913
  4. ALFASON [Concomitant]
     Dates: start: 20121011, end: 20121025
  5. CANDESARTAN [Concomitant]
     Dosage: 4 MG, QD
     Dates: start: 20130107
  6. L-THYROXIN [Concomitant]
     Dates: start: 20130305

REACTIONS (2)
  - Hypothyroidism [Unknown]
  - Hypertonia [Not Recovered/Not Resolved]
